FAERS Safety Report 19675505 (Version 1)
Quarter: 2021Q3

REPORT INFORMATION
  Report Type: Other
  Country: GB (occurrence: GB)
  Receive Date: 20210809
  Receipt Date: 20210809
  Transmission Date: 20211014
  Serious: Yes (Hospitalization)
  Sender: FDA-Public Use
  Company Number: GB-STRIDES ARCOLAB LIMITED-2021SP025958

PATIENT
  Age: 56 Year
  Sex: Female

DRUGS (37)
  1. ADCAL D3 [Suspect]
     Active Substance: CALCIUM CARBONATE\CHOLECALCIFEROL
     Indication: PRODUCT USED FOR UNKNOWN INDICATION
     Dosage: COLECALCIFEROL 400UNIT/CALCIUM CARBONATE 1.5G EFFERVESCENT TABLETS HALF A TABLET DAILY
     Route: 065
     Dates: start: 20210301
  2. DIAZEPAM. [Concomitant]
     Active Substance: DIAZEPAM
     Dosage: DIAZEPAM 2MG TABLETS HALF A TABLET TO BE TAKEN DAILY FOR TWO WEEKS 7 TABLET ? TBC WITH MAR CHART
     Route: 065
     Dates: start: 20210317
  3. DIAZEPAM. [Concomitant]
     Active Substance: DIAZEPAM
     Dosage: DIAZEPAM 2MG TABLETS ONE TO BE TAKEN TWICE A DAY WHEN REQUIRED A MXIMUM OF THREE TIMES A WEEK 28 TAB
     Route: 065
     Dates: start: 20210317
  4. HYPROMELLOSE [Concomitant]
     Active Substance: HYPROMELLOSES
     Dosage: PROMELLOSE 0.3% EYE DROPS TO BE USED WHEN REQUIRED 20 ML
     Route: 065
     Dates: start: 20200108
  5. AMLODIPINE [Concomitant]
     Active Substance: AMLODIPINE BESYLATE
     Indication: ESSENTIAL HYPERTENSION
     Dosage: UNK
     Route: 065
  6. AMLODIPINE [Concomitant]
     Active Substance: AMLODIPINE BESYLATE
     Dosage: ONE TO BE TAKEN EACH DAY 28 TABLET ? MORNING
     Route: 065
     Dates: start: 20210301
  7. CODEINE [Concomitant]
     Active Substance: CODEINE
     Dosage: CODEINE 30MG TABLETS ONE OR TWO TO BE TAKEN EVERY FOUR HOURS WHEN NECESSARY. MAXIMUM 8 IN 24 HOURS
     Route: 065
     Dates: start: 20210215
  8. HYDROCORTISONE. [Concomitant]
     Active Substance: HYDROCORTISONE
     Indication: PRODUCT USED FOR UNKNOWN INDICATION
     Dosage: UNK
     Route: 065
  9. SODIUM VALPROATE [Concomitant]
     Active Substance: VALPROATE SODIUM
     Dosage: 200MG GASTRO?RESISTANT TABLETS TWO TO BE TAKEN TWICE A DAY 112 TABLET?MORNING, TEATIME
     Route: 065
  10. DERMOL [BENZALKONIUM CHLORIDE;CHLORHEXIDINE HYDROCHLORIDE;ISOPROPYL MY [Concomitant]
     Dosage: DERMOL 500 LOTION APPLY TO SKIN OR USE AS A SOAP SUBSTITUTE 500 ML PRN
     Route: 065
     Dates: start: 20200918
  11. DERMOL [BENZALKONIUM CHLORIDE;CHLORHEXIDINE HYDROCHLORIDE;ISOPROPYL MY [Concomitant]
     Dosage: DERMOL 500 LOTION (DERMAL LABORATORIES LTD) APPLY TO SKIN AS MOISTURISER, AND USE AS A SOAP SUBSTITU
     Route: 065
     Dates: start: 20210318
  12. HYDROCORTISONE. [Concomitant]
     Active Substance: HYDROCORTISONE
     Dosage: HYDROCORTISONE 1% CREAM APPLY THINLY TWICE A DAY AS DIRECTED 30 GRAM
     Route: 065
     Dates: start: 20210318
  13. LANSOPRAZOLE. [Concomitant]
     Active Substance: LANSOPRAZOLE
     Indication: DYSPEPSIA
     Dosage: UNK
     Route: 065
  14. SODIUM VALPROATE [Concomitant]
     Active Substance: VALPROATE SODIUM
     Dosage: SODIUM VALPROATE 100MG TABLETS 1 NOCTE 28 TABLET?NOT IN BLISTERPACK
     Route: 065
     Dates: start: 20210301
  15. ZOPICLONE [Concomitant]
     Active Substance: ZOPICLONE
     Dosage: ZOPICLONE 7.5MG TABLETS ONE TO BE TAKEN AT NIGHT 7 TABLET ? PRN
     Route: 065
     Dates: start: 20210324
  16. FERROUS SULFATE. [Concomitant]
     Active Substance: FERROUS SULFATE
     Dosage: FERROUS SULFATE 200MG TABLETS ONE TO BE TAKEN TWICE A DAY 84 TABLET
     Route: 065
     Dates: start: 20210201
  17. IBUPROFEN. [Concomitant]
     Active Substance: IBUPROFEN
     Indication: OSTEOARTHRITIS
     Dosage: UNK
     Route: 065
  18. KETOCONAZOLE. [Concomitant]
     Active Substance: KETOCONAZOLE
     Indication: PRODUCT USED FOR UNKNOWN INDICATION
     Dosage: UNK
     Route: 065
  19. LEVOTHYROXINE. [Concomitant]
     Active Substance: LEVOTHYROXINE
     Indication: PRODUCT USED FOR UNKNOWN INDICATION
     Dosage: UNK
     Route: 065
  20. OLANZAPINE. [Concomitant]
     Active Substance: OLANZAPINE
     Dosage: 20MG TABLETS ONE TO BE TAKEN AT NIGHT 28 TABLET? NIGHT
     Route: 065
     Dates: start: 20210301
  21. SODIUM VALPROATE [Concomitant]
     Active Substance: VALPROATE SODIUM
     Indication: EPILEPSY
     Dosage: UNK
     Route: 065
  22. CALCITRIOL. [Suspect]
     Active Substance: CALCITRIOL
     Indication: PRODUCT USED FOR UNKNOWN INDICATION
     Dosage: 250NANOGRAM CAPSULES ONE TO BE TAKEN EACH DAY? MORNING
     Route: 065
     Dates: start: 20210301
  23. CODEINE [Concomitant]
     Active Substance: CODEINE
     Indication: PRODUCT USED FOR UNKNOWN INDICATION
     Dosage: UNK
     Route: 065
  24. HYPROMELLOSE [Concomitant]
     Active Substance: HYPROMELLOSES
     Indication: PRODUCT USED FOR UNKNOWN INDICATION
     Dosage: UNK
     Route: 065
  25. IBUPROFEN. [Concomitant]
     Active Substance: IBUPROFEN
     Dosage: IBUPROFEN 10% GEL APPLY UP TO FOUR TIMES A DAY 100 GRAM ? PT SAYS STILL USING AND WOULD LIKE WHILE I
     Route: 065
     Dates: start: 20200918
  26. KETOCONAZOLE. [Concomitant]
     Active Substance: KETOCONAZOLE
     Dosage: APPLY TWICE EACH WEEK FOR 6W COURSE 120 ML
     Route: 065
     Dates: start: 20210301
  27. PARACETAMOL [Concomitant]
     Active Substance: ACETAMINOPHEN
     Indication: PRODUCT USED FOR UNKNOWN INDICATION
     Dosage: UNK
     Route: 065
  28. PARACETAMOL [Concomitant]
     Active Substance: ACETAMINOPHEN
     Dosage: 500 MILLIGRAM TABLETS 1 TO 2 FOUR TIMES A DAY AS REQUIRED ? PT HAS 2 TDS REGULAR
     Route: 065
     Dates: start: 20210317
  29. DIAZEPAM. [Concomitant]
     Active Substance: DIAZEPAM
     Indication: PRODUCT USED FOR UNKNOWN INDICATION
     Dosage: UNK
     Route: 065
  30. FERROUS SULFATE. [Concomitant]
     Active Substance: FERROUS SULFATE
     Indication: PRODUCT USED FOR UNKNOWN INDICATION
     Dosage: UNK
     Route: 065
  31. FERROUS SULFATE. [Concomitant]
     Active Substance: FERROUS SULFATE
     Dosage: FERROUS SULFATE 200MG TABLETS ONE TO BE TAKEN TWICE A DAY 84 TABLET ? TBC WITH MAR CHART
     Route: 065
     Dates: start: 20210317
  32. LANSOPRAZOLE. [Concomitant]
     Active Substance: LANSOPRAZOLE
     Dosage: 30MG ORODISPERSIBLE TABLETS ONE TO BE TAKEN EACH MORNING 28 TABLET, NOT IN BLISTERPACK
     Route: 065
     Dates: start: 20210301
  33. ASTRAZENECA COVID?19 VACCINE [Concomitant]
     Active Substance: AZD-1222
     Indication: PRODUCT USED FOR UNKNOWN INDICATION
     Dosage: UNK
     Route: 030
  34. DERMOL [BENZALKONIUM CHLORIDE;CHLORHEXIDINE HYDROCHLORIDE;ISOPROPYL MY [Concomitant]
     Indication: PRODUCT USED FOR UNKNOWN INDICATION
     Dosage: UNK
     Route: 065
  35. LEVOTHYROXINE. [Concomitant]
     Active Substance: LEVOTHYROXINE
     Dosage: 100 MICROGRAM TABLETS ONE TO BE TAKEN DAILY? MORNING
     Route: 065
     Dates: start: 20210301
  36. ZOPICLONE [Concomitant]
     Active Substance: ZOPICLONE
     Indication: PRODUCT USED FOR UNKNOWN INDICATION
     Dosage: UNK
     Route: 065
  37. OLANZAPINE. [Concomitant]
     Active Substance: OLANZAPINE
     Indication: ANXIETY
     Dosage: UNK
     Route: 065

REACTIONS (2)
  - Hypercalcaemia [Unknown]
  - Nephrolithiasis [Unknown]
